FAERS Safety Report 7527300-0 (Version None)
Quarter: 2011Q2

REPORT INFORMATION
  Report Type: 
  Country: None (occurrence: None)
  Receive Date: 20110509
  Receipt Date: 20100426
  Transmission Date: 20111010
  Serious: Yes (Hospitalization, Other)
  Sender: FDA-Public Use
  Company Number: 2010BH011464

PATIENT
  Age: 57 Year
  Sex: Female
  Weight: 50.79 kg

DRUGS (5)
  1. BORTEZOMIB [Suspect]
     Indication: NON-HODGKIN'S LYMPHOMA
     Dosage: 1.6 MG/M**2;;IV
     Route: 042
     Dates: start: 20100315, end: 20100405
  2. CYTOXAN [Suspect]
     Indication: NON-HODGKIN'S LYMPHOMA
     Dosage: 1120 MG; IV
     Route: 042
     Dates: start: 20100315, end: 20100405
  3. DOXORUBICIN HCL [Suspect]
     Indication: NON-HODGKIN'S LYMPHOMA
     Dosage: 74 MG;IV
     Route: 042
     Dates: start: 20100315, end: 20100405
  4. RITUXIMAB [Suspect]
     Indication: NON-HODGKIN'S LYMPHOMA
     Dosage: 600 MG;IV
     Dates: start: 20100315, end: 20100405
  5. PREDNISOLONE [Suspect]
     Indication: NON-HODGKIN'S LYMPHOMA
     Dosage: PO
     Route: 048
     Dates: start: 20100315

REACTIONS (2)
  - PYREXIA [None]
  - NEUTROPENIA [None]
